FAERS Safety Report 15656365 (Version 1)
Quarter: 2018Q4

REPORT INFORMATION
  Report Type: Spontaneous
  Country: FR (occurrence: FR)
  Receive Date: 20181126
  Receipt Date: 20181126
  Transmission Date: 20190205
  Serious: Yes (Life-Threatening, Hospitalization)
  Sender: FDA-Public Use
  Company Number: FR-PFIZER INC-2018479960

PATIENT
  Age: 73 Year
  Sex: Male
  Weight: 65 kg

DRUGS (5)
  1. TARKA [Suspect]
     Active Substance: TRANDOLAPRIL\VERAPAMIL HYDROCHLORIDE
     Dosage: 20 DF, SINGLE
     Route: 048
     Dates: start: 20170311, end: 20170311
  2. DULCOLAX (BISACODYL) [Suspect]
     Active Substance: BISACODYL
     Dosage: 1 DF, UNK
     Route: 048
     Dates: start: 20170311, end: 20170311
  3. DOLIPRANE [Suspect]
     Active Substance: ACETAMINOPHEN
     Dosage: 5 G, SINGLE
     Route: 048
     Dates: start: 20170311, end: 20170311
  4. SIMVASTATINE [Suspect]
     Active Substance: SIMVASTATIN
     Dosage: 1 DF, UNK
     Route: 048
     Dates: start: 20170311, end: 20170311
  5. SILDENAFIL CITRATE. [Suspect]
     Active Substance: SILDENAFIL CITRATE
     Dosage: 1 DF, UNK
     Route: 048
     Dates: start: 20170311, end: 20170311

REACTIONS (7)
  - Suicide attempt [Unknown]
  - Hypotension [Recovered/Resolved]
  - Toxicity to various agents [Recovered/Resolved]
  - Cardiogenic shock [Recovered/Resolved]
  - Circulatory collapse [Recovered/Resolved]
  - Acute kidney injury [Recovered/Resolved]
  - Intentional product misuse [Recovered/Resolved]

NARRATIVE: CASE EVENT DATE: 20170311
